FAERS Safety Report 12363515 (Version 2)
Quarter: 2016Q4

REPORT INFORMATION
  Report Type: Report from Study
  Country: US (occurrence: US)
  Receive Date: 20160512
  Receipt Date: 20161207
  Transmission Date: 20170207
  Serious: Yes (Hospitalization)
  Sender: FDA-Public Use
  Company Number: US-UCBSA-2015040668

PATIENT
  Age: 35 Year
  Sex: Female
  Weight: 68 kg

DRUGS (4)
  1. CERTOLIZUMAB PEGOL [Suspect]
     Active Substance: CERTOLIZUMAB PEGOL
     Indication: ARTHRITIS
     Dosage: 400 MG, EV 4 WEEKS; STRENGTH: 200MG
     Route: 058
     Dates: start: 201509
  2. CERTOLIZUMAB PEGOL [Suspect]
     Active Substance: CERTOLIZUMAB PEGOL
     Indication: CROHN^S DISEASE
     Dosage: LOADING DOSE (UNKNOWN)
     Dates: start: 2015, end: 2015
  3. CERTOLIZUMAB PEGOL [Suspect]
     Active Substance: CERTOLIZUMAB PEGOL
     Dosage: 200 MG, EV 2 WEEKS(QOW)
  4. DEPO-PROVERA [Concomitant]
     Active Substance: MEDROXYPROGESTERONE ACETATE
     Indication: PRODUCT USED FOR UNKNOWN INDICATION
     Dosage: UNK

REACTIONS (3)
  - Crohn^s disease [Recovering/Resolving]
  - Drug effect decreased [Unknown]
  - Liver disorder [Not Recovered/Not Resolved]

NARRATIVE: CASE EVENT DATE: 2015
